FAERS Safety Report 19811546 (Version 8)
Quarter: 2022Q2

REPORT INFORMATION
  Report Type: Report from Study
  Country: US (occurrence: US)
  Receive Date: 20210909
  Receipt Date: 20220520
  Transmission Date: 20220721
  Serious: No
  Sender: FDA-Public Use
  Company Number: US-GLAXOSMITHKLINE-US2021AMR187358

PATIENT

DRUGS (1)
  1. BELANTAMAB MAFODOTIN [Suspect]
     Active Substance: BELANTAMAB MAFODOTIN
     Indication: Plasma cell myeloma
     Dosage: UNK
     Dates: start: 20210812

REACTIONS (10)
  - Keratopathy [Unknown]
  - Visual acuity reduced [Unknown]
  - Erythema of eyelid [Unknown]
  - Night blindness [Unknown]
  - Photophobia [Unknown]
  - Dry eye [Unknown]
  - Foreign body sensation in eyes [Unknown]
  - Conjunctivitis [Unknown]
  - Treatment delayed [Unknown]
  - Eye symptom [Not Recovered/Not Resolved]

NARRATIVE: CASE EVENT DATE: 20210902
